FAERS Safety Report 4551125-1 (Version None)
Quarter: 2005Q1

REPORT INFORMATION
  Report Type: 
  Country: None (occurrence: None)
  Receive Date: 20050113
  Receipt Date: 20041229
  Transmission Date: 20050727
  Serious: Yes (Other)
  Sender: FDA-Public Use
  Company Number: PHEH2004US13733

PATIENT
  Age: 59 Year
  Sex: Female

DRUGS (5)
  1. ZELNORM [Suspect]
     Indication: IRRITABLE BOWEL SYNDROME
     Dosage: 6 MG, QD
     Dates: start: 20040803, end: 20041207
  2. ATENOLOL [Concomitant]
  3. VITAMIN E [Concomitant]
  4. VITAMIN C [Concomitant]
  5. OSCAL [Concomitant]

REACTIONS (2)
  - DIARRHOEA [None]
  - DIZZINESS [None]
